FAERS Safety Report 21526184 (Version 1)
Quarter: 2022Q4

REPORT INFORMATION
  Report Type: Report from Study
  Country: MX (occurrence: MX)
  Receive Date: 20221031
  Receipt Date: 20221031
  Transmission Date: 20230112
  Serious: Yes (Hospitalization)
  Sender: FDA-Public Use
  Company Number: MX-NOVARTISPH-NVSC2022MX223048

PATIENT
  Sex: Male
  Weight: 95 kg

DRUGS (2)
  1. METFORMIN HYDROCHLORIDE\VILDAGLIPTIN [Suspect]
     Active Substance: METFORMIN HYDROCHLORIDE\VILDAGLIPTIN
     Indication: Diabetes mellitus
     Dosage: 1 (50/850 MG), BID (ONLY 15 DAYS) DOES NOT KNOW EXACT DATE)
     Route: 048
     Dates: start: 2021, end: 2021
  2. METFORMIN HYDROCHLORIDE\VILDAGLIPTIN [Suspect]
     Active Substance: METFORMIN HYDROCHLORIDE\VILDAGLIPTIN
     Dosage: 0.5 DOSAGE FORM, BID (50/850 MG)
     Route: 048
     Dates: start: 2021

REACTIONS (10)
  - Ankle fracture [Not Recovered/Not Resolved]
  - Fibula fracture [Not Recovered/Not Resolved]
  - Tachycardia [Recovered/Resolved]
  - Blood glucose decreased [Recovered/Resolved]
  - Foot fracture [Recovering/Resolving]
  - Blood cholesterol increased [Not Recovered/Not Resolved]
  - Blood triglycerides increased [Not Recovered/Not Resolved]
  - Pain [Recovered/Resolved]
  - Dysstasia [Not Recovered/Not Resolved]
  - Wrong technique in product usage process [Not Recovered/Not Resolved]

NARRATIVE: CASE EVENT DATE: 20210101
